FAERS Safety Report 17232379 (Version 2)
Quarter: 2020Q1

REPORT INFORMATION
  Report Type: Report from Study
  Country: US (occurrence: US)
  Receive Date: 20200103
  Receipt Date: 20200211
  Transmission Date: 20200409
  Serious: No
  Sender: FDA-Public Use
  Company Number: US-SA-2020SA000910

PATIENT
  Age: 32 Year
  Sex: Female

DRUGS (1)
  1. DUPILUMAB [Suspect]
     Active Substance: DUPILUMAB
     Indication: NASAL POLYPS
     Dosage: 300 MG, QOW
     Route: 058
     Dates: start: 20191202

REACTIONS (5)
  - Secretion discharge [Unknown]
  - Wrong technique in device usage process [Unknown]
  - Anosmia [Unknown]
  - Drug dose omission by device [Unknown]
  - Ageusia [Unknown]

NARRATIVE: CASE EVENT DATE: 20200128
